FAERS Safety Report 8193233-2 (Version None)
Quarter: 2012Q1

REPORT INFORMATION
  Report Type: 
  Country: None (occurrence: None)
  Receive Date: 20120308
  Receipt Date: 20120302
  Transmission Date: 20120608
  Serious: No
  Sender: FDA-Public Use
  Company Number: US-BAYER-2012-021922

PATIENT
  Sex: Female

DRUGS (4)
  1. TRAMADOL HCL [Concomitant]
  2. ASPIRIN [Concomitant]
  3. ALEVE (CAPLET) [Suspect]
     Indication: MYALGIA
  4. ALEVE (CAPLET) [Suspect]
     Indication: PAIN
     Dosage: 2 DF, BID
     Route: 048
     Dates: start: 20060101

REACTIONS (1)
  - NO ADVERSE EVENT [None]
